FAERS Safety Report 6653308-3 (Version None)
Quarter: 2010Q1

REPORT INFORMATION
  Report Type: 
  Country: None (occurrence: None)
  Receive Date: 20100326
  Receipt Date: 20100317
  Transmission Date: 20100710
  Serious: Yes (Death, Other)
  Sender: FDA-Public Use
  Company Number: US-ROCHE-683814

PATIENT
  Sex: Male
  Weight: 64.9 kg

DRUGS (4)
  1. VESANOID [Suspect]
     Dosage: DOSE: 2X10 MG CAPSULES X 10 DAYS, BID
     Route: 048
  2. VESANOID [Suspect]
     Dosage: LAST CYCLE ON: 15 APRIL- 29 APRIL 2009
     Route: 048
     Dates: start: 20090415, end: 20090429
  3. MERCAPTOPURINE [Concomitant]
     Dates: start: 20090703, end: 20090721
  4. METHOTREXATE [Concomitant]
     Dosage: DOSE: 12.5 MG WEEKLY
     Dates: start: 20090703, end: 20090717

REACTIONS (3)
  - NEUTROPENIA [None]
  - SEPSIS [None]
  - THROMBOCYTOPENIA [None]
